FAERS Safety Report 14757117 (Version 1)
Quarter: 2018Q2

REPORT INFORMATION
  Report Type: Spontaneous
  Country: FR (occurrence: FR)
  Receive Date: 20180413
  Receipt Date: 20180413
  Transmission Date: 20180711
  Serious: Yes (Other)
  Sender: FDA-Public Use
  Company Number: FR-JNJFOC-20180409553

PATIENT
  Age: 19 Year
  Sex: Female

DRUGS (2)
  1. RISPERDAL [Suspect]
     Active Substance: RISPERIDONE
     Indication: PRODUCT USED FOR UNKNOWN INDICATION
     Route: 065
     Dates: end: 2018
  2. TERCIAN [Concomitant]
     Active Substance: CYAMEMAZINE
     Route: 065

REACTIONS (2)
  - Tachycardia [Unknown]
  - Brief psychotic disorder with marked stressors [Unknown]

NARRATIVE: CASE EVENT DATE: 2018
